FAERS Safety Report 14221127 (Version 4)
Quarter: 2018Q2

REPORT INFORMATION
  Report Type: Spontaneous
  Country: US (occurrence: US)
  Receive Date: 20171124
  Receipt Date: 20180629
  Transmission Date: 20180711
  Serious: No
  Sender: FDA-Public Use
  Company Number: US-PFIZER INC-2017505150

PATIENT
  Age: 65 Year
  Sex: Female
  Weight: 77 kg

DRUGS (18)
  1. DOCETAXEL HOSPIRA [Suspect]
     Active Substance: DOCETAXEL
     Indication: BREAST CANCER FEMALE
  2. DOCETAXEL HOSPIRA [Suspect]
     Active Substance: DOCETAXEL
     Indication: METASTASES TO LYMPH NODES
  3. ZOLOFT [Concomitant]
     Active Substance: SERTRALINE HYDROCHLORIDE
     Dosage: UNK
     Dates: start: 200206
  4. DOCETAXEL. [Suspect]
     Active Substance: DOCETAXEL
     Indication: CHEMOTHERAPY
     Dosage: UNK, EVERY 3 WEEKS, SIX CYCLES
     Dates: start: 20141201, end: 20150223
  5. DOCETAXEL. [Suspect]
     Active Substance: DOCETAXEL
     Indication: CHEMOTHERAPY
     Dosage: UNK, EVERY 3 WEEKS, SIX CYCLES
     Dates: start: 20141201, end: 20150223
  6. TAXOTERE [Suspect]
     Active Substance: DOCETAXEL
     Indication: BREAST CANCER FEMALE
  7. DOCETAXEL. [Suspect]
     Active Substance: DOCETAXEL
     Indication: BREAST CANCER FEMALE
  8. DOCETAXEL HOSPIRA [Suspect]
     Active Substance: DOCETAXEL
     Indication: CHEMOTHERAPY
     Dosage: UNK, EVERY 3 WEEKS, SIX CYCLES
     Dates: start: 20141201, end: 20150223
  9. TAXOTERE [Suspect]
     Active Substance: DOCETAXEL
     Indication: METASTASES TO LYMPH NODES
  10. DOCETAXEL. [Suspect]
     Active Substance: DOCETAXEL
     Indication: METASTASES TO LYMPH NODES
  11. DOCETAXEL ACCORD [Suspect]
     Active Substance: DOCETAXEL
     Indication: CHEMOTHERAPY
     Dosage: UNK, EVERY 3 WEEKS, SIX CYCLES
     Dates: start: 20141201, end: 20150223
  12. TAXOTERE [Suspect]
     Active Substance: DOCETAXEL
     Indication: CHEMOTHERAPY
     Dosage: UNK, EVERY 3 WEEKS, SIX CYCLES
     Dates: start: 20141201, end: 20150223
  13. CYTOXAN [Concomitant]
     Active Substance: CYCLOPHOSPHAMIDE
     Indication: CHEMOTHERAPY
     Dosage: UNK
  14. DOCETAXEL. [Suspect]
     Active Substance: DOCETAXEL
     Indication: BREAST CANCER FEMALE
  15. DOCETAXEL ACCORD [Suspect]
     Active Substance: DOCETAXEL
     Indication: METASTASES TO LYMPH NODES
  16. SYNTHROID [Concomitant]
     Active Substance: LEVOTHYROXINE SODIUM
     Indication: HORMONE THERAPY
     Dosage: UNK
     Dates: start: 199907, end: 201607
  17. DOCETAXEL. [Suspect]
     Active Substance: DOCETAXEL
     Indication: METASTASES TO LYMPH NODES
  18. DOCETAXEL ACCORD [Suspect]
     Active Substance: DOCETAXEL
     Indication: BREAST CANCER FEMALE

REACTIONS (5)
  - Madarosis [Recovered/Resolved]
  - Hair disorder [Recovered/Resolved]
  - Hair texture abnormal [Recovered/Resolved]
  - Hair colour changes [Recovered/Resolved]
  - Alopecia [Not Recovered/Not Resolved]

NARRATIVE: CASE EVENT DATE: 201502
